FAERS Safety Report 8950885 (Version 1)
Quarter: 2012Q4

REPORT INFORMATION
  Report Type: 
  Country: JP (occurrence: JP)
  Receive Date: 20121207
  Receipt Date: 20121207
  Transmission Date: 20130627
  Serious: Yes (Hospitalization, Other)
  Sender: FDA-Public Use
  Company Number: JP-ROXANE LABORATORIES, INC.-2012-RO-02506RO

PATIENT
  Age: 67 Year
  Sex: Female

DRUGS (9)
  1. DEXAMETHASONE [Suspect]
     Indication: MULTIPLE MYELOMA
  2. DEXAMETHASONE [Suspect]
     Route: 048
  3. DEXAMETHASONE [Suspect]
     Route: 048
  4. CYCLOPHOSPHAMIDE TABLETS USP [Suspect]
     Indication: MULTIPLE MYELOMA
  5. BORTEZOMIB [Suspect]
     Indication: MULTIPLE MYELOMA
     Dates: start: 200803, end: 201007
  6. BORTEZOMIB [Suspect]
  7. ZOLEDRONIC ACID [Suspect]
  8. LENALIDOMIDE [Suspect]
     Indication: MULTIPLE MYELOMA
     Dosage: 5 mg
     Route: 048
  9. LENALIDOMIDE [Suspect]
     Dosage: 10 mg
     Route: 048

REACTIONS (9)
  - Pancytopenia [Unknown]
  - Pathological fracture [Unknown]
  - Renal failure acute [Unknown]
  - Tetany [Unknown]
  - Hypocalcaemia [Unknown]
  - Hypomagnesaemia [Unknown]
  - Plasma cell myeloma [Unknown]
  - Hypercalcaemia [Unknown]
  - Osteopenia [Unknown]
